FAERS Safety Report 12246500 (Version 1)
Quarter: 2016Q2

REPORT INFORMATION
  Report Type: Spontaneous
  Country: IT (occurrence: IT)
  Receive Date: 20160407
  Receipt Date: 20160407
  Transmission Date: 20160815
  Serious: Yes (Hospitalization)
  Sender: FDA-Public Use
  Company Number: IT-JNJFOC-20160404159

PATIENT
  Age: 75 Year
  Sex: Female

DRUGS (5)
  1. XARELTO [Suspect]
     Active Substance: RIVAROXABAN
     Indication: MITRAL VALVE PROLAPSE
     Route: 048
     Dates: start: 20160101, end: 20160216
  2. ACETYLSALICYLIC ACID [Suspect]
     Active Substance: ASPIRIN
     Indication: THROMBOSIS PROPHYLAXIS
     Route: 048
     Dates: start: 20160101, end: 20160216
  3. LASIX [Concomitant]
     Active Substance: FUROSEMIDE
     Route: 048
  4. ACCURETIC [Concomitant]
     Active Substance: HYDROCHLOROTHIAZIDE\QUINAPRIL HYDROCHLORIDE
     Route: 048
  5. LANSOX [Concomitant]
     Active Substance: LANSOPRAZOLE
     Route: 048

REACTIONS (3)
  - Intestinal haemorrhage [Unknown]
  - Melaena [Unknown]
  - Abdominal pain [Unknown]

NARRATIVE: CASE EVENT DATE: 20160216
